FAERS Safety Report 25362372 (Version 1)
Quarter: 2025Q2

REPORT INFORMATION
  Report Type: Spontaneous
  Country: US (occurrence: None)
  Receive Date: 20250523
  Receipt Date: 20250523
  Transmission Date: 20250716
  Serious: Yes (Other)
  Sender: FDA-CTU
  Company Number: None

PATIENT
  Age: 21 Year
  Sex: Female
  Weight: 81 kg

DRUGS (28)
  1. NORTRIPTYLINE [Suspect]
     Active Substance: NORTRIPTYLINE
     Indication: Major depression
     Dosage: 1 CAPSULE AT BEDTIME ORAL ?
     Route: 048
     Dates: start: 20250516
  2. NORTRIPTYLINE [Suspect]
     Active Substance: NORTRIPTYLINE
     Indication: Generalised anxiety disorder
  3. NOTRIPTYLINE [Concomitant]
  4. DEXMETHYLPHENIDATE [Concomitant]
     Active Substance: DEXMETHYLPHENIDATE
  5. ARIPIPRAZOLE [Concomitant]
     Active Substance: ARIPIPRAZOLE
  6. RIMEGEPANT [Concomitant]
     Active Substance: RIMEGEPANT
  7. MAGNESIUM GLYCINATE [Concomitant]
     Active Substance: MAGNESIUM GLYCINATE
  8. CETIRIZINE HYDROCHLORIDE [Concomitant]
     Active Substance: CETIRIZINE HYDROCHLORIDE
  9. VITAMIN A [Concomitant]
     Active Substance: VITAMIN A
  10. VITAMIN C [Concomitant]
     Active Substance: ASCORBIC ACID
  11. VITAMIN B12 [Concomitant]
     Active Substance: CYANOCOBALAMIN
  12. VITAMIN B6 [Concomitant]
     Active Substance: PYRIDOXINE HYDROCHLORIDE
  13. VITAMIN B12 [Concomitant]
     Active Substance: CYANOCOBALAMIN
  14. VITAMIN D3 [Concomitant]
     Active Substance: CHOLECALCIFEROL
  15. VITAMIN E [Concomitant]
     Active Substance: .ALPHA.-TOCOPHEROL
  16. THIAMINE [Concomitant]
     Active Substance: THIAMINE
  17. NIACIN [Concomitant]
     Active Substance: NIACIN
  18. FOLIC ACID [Concomitant]
     Active Substance: FOLIC ACID
  19. BIOTIN [Concomitant]
     Active Substance: BIOTIN
  20. CALCIUM [Concomitant]
     Active Substance: CALCIUM
  21. IRON [Concomitant]
     Active Substance: IRON
  22. IODINE [Concomitant]
     Active Substance: IODINE
  23. ZINC OXIDE [Concomitant]
     Active Substance: ZINC OXIDE
  24. SELENIUM [Concomitant]
     Active Substance: SELENIUM
  25. COPPER [Concomitant]
     Active Substance: COPPER
  26. MANGANESE [Concomitant]
     Active Substance: MANGANESE CHLORIDE
  27. CHROMIUM [Concomitant]
     Active Substance: CHROMIC CHLORIDE\CHROMIUM
  28. MOLYBDENUM [Concomitant]
     Active Substance: MOLYBDENUM

REACTIONS (4)
  - Anxiety [None]
  - Depression [None]
  - Suicidal ideation [None]
  - Self-destructive behaviour [None]

NARRATIVE: CASE EVENT DATE: 20250520
